FAERS Safety Report 18326854 (Version 2)
Quarter: 2020Q4

REPORT INFORMATION
  Report Type: Spontaneous
  Country: US (occurrence: US)
  Receive Date: 20200930
  Receipt Date: 20201008
  Transmission Date: 20210113
  Serious: No
  Sender: FDA-Public Use
  Company Number: US-JNJFOC-20200940260

PATIENT
  Sex: Female
  Weight: 72.64 kg

DRUGS (1)
  1. WOMENS ROGAINE UNSCENTED [Suspect]
     Active Substance: MINOXIDIL
     Indication: ALOPECIA
     Dosage: 1/2  CAP?LAST ADMINISTERED DATE: 07-SEP-2020
     Route: 061
     Dates: start: 20150101

REACTIONS (1)
  - Drug ineffective [Unknown]
